FAERS Safety Report 12189665 (Version 5)
Quarter: 2025Q3

REPORT INFORMATION
  Report Type: Spontaneous
  Country: US (occurrence: US)
  Receive Date: 20160318
  Receipt Date: 20250826
  Transmission Date: 20251020
  Serious: Yes (Hospitalization, Other)
  Sender: AUROBINDO
  Company Number: US-AUROBINDO-AUR-APL-2016-03551

PATIENT
  Age: 78 Year
  Sex: Male

DRUGS (8)
  1. CAPECITABINE [Interacting]
     Active Substance: CAPECITABINE
     Indication: Skin cancer
     Dosage: 750 MG, TWO TIMES A DAY
     Route: 048
  2. CAPECITABINE [Interacting]
     Active Substance: CAPECITABINE
     Indication: Squamous cell carcinoma
     Dosage: ON ALTERNATE WEEKS
     Route: 048
  3. CYCLOPHOSPHAMIDE [Interacting]
     Active Substance: CYCLOPHOSPHAMIDE
     Indication: Chronic lymphocytic leukaemia
     Route: 065
  4. PAROXETINE [Interacting]
     Active Substance: PAROXETINE
     Indication: Product used for unknown indication
     Route: 065
  5. ESOMEPRAZOLE [Interacting]
     Active Substance: ESOMEPRAZOLE
     Indication: Product used for unknown indication
     Route: 065
  6. SIMVASTATIN [Interacting]
     Active Substance: SIMVASTATIN
     Indication: Product used for unknown indication
     Route: 065
  7. FLUDARABINE [Interacting]
     Active Substance: FLUDARABINE PHOSPHATE
     Indication: Chronic lymphocytic leukaemia
     Route: 065
  8. RITUXIMAB [Interacting]
     Active Substance: RITUXIMAB
     Indication: Chronic lymphocytic leukaemia
     Route: 065

REACTIONS (7)
  - Meningitis cryptococcal [Not Recovered/Not Resolved]
  - Encephalopathy [Unknown]
  - Nervous system disorder [Unknown]
  - Agitation [Unknown]
  - Drug interaction [Unknown]
  - Off label use [Unknown]
  - False negative investigation result [Unknown]
